FAERS Safety Report 7150393-X (Version None)
Quarter: 2010Q4

REPORT INFORMATION
  Report Type: 
  Country: None (occurrence: None)
  Receive Date: 20101207
  Receipt Date: 20101207
  Transmission Date: 20110411
  Serious: Yes (Hospitalization)
  Sender: FDA-Public Use
  Company Number: None

PATIENT
  Age: 52 Year
  Sex: Male
  Weight: 84.4598 kg

DRUGS (1)
  1. CLOZARIL [Suspect]
     Indication: SCHIZOPHRENIA
     Dosage: 500MG QHS PO (2 DOSES)
     Route: 048
     Dates: start: 20100811, end: 20100813

REACTIONS (2)
  - AGITATION [None]
  - DYSARTHRIA [None]
